FAERS Safety Report 13628178 (Version 1)
Quarter: 2017Q2

REPORT INFORMATION
  Report Type: Other
  Country: HR (occurrence: HR)
  Receive Date: 20170607
  Receipt Date: 20170607
  Transmission Date: 20170830
  Serious: Yes (Other)
  Sender: FDA-Public Use
  Company Number: HR-HIKMA PHARMACEUTICALS CO. LTD-2017HR007221

PATIENT

DRUGS (3)
  1. INFLECTRA [Suspect]
     Active Substance: INFLIXIMAB-DYYB
     Indication: PSORIATIC ARTHROPATHY
     Dosage: 200 MG, UNK
     Route: 042
     Dates: start: 201509, end: 201606
  2. DECORTIN [Concomitant]
     Active Substance: PREDNISONE
     Indication: PSORIATIC ARTHROPATHY
     Dosage: 5 MG, UNK
     Route: 048
  3. LUPOCET [Concomitant]
     Indication: PSORIATIC ARTHROPATHY
     Dosage: 500 MG, DAILY
     Route: 048

REACTIONS (3)
  - Psoriatic arthropathy [Recovering/Resolving]
  - Condition aggravated [Recovering/Resolving]
  - Drug ineffective [Recovering/Resolving]

NARRATIVE: CASE EVENT DATE: 201606
